FAERS Safety Report 5092389-8 (Version None)
Quarter: 2006Q3

REPORT INFORMATION
  Report Type: 
  Country: None (occurrence: None)
  Receive Date: 20060825
  Receipt Date: 20060809
  Transmission Date: 20061208
  Serious: Yes (Other)
  Sender: FDA-Public Use
  Company Number: US-2006-022534

PATIENT
  Age: 59 Year
  Sex: Female

DRUGS (1)
  1. BETASERON [Suspect]
     Indication: RELAPSING-REMITTING MULTIPLE SCLEROSIS
     Dosage: 8 MIU, EVERY 2D, SUBCUTANEOUS
     Route: 058
     Dates: start: 20060715

REACTIONS (11)
  - ABDOMINAL DISCOMFORT [None]
  - ARTHROPOD BITE [None]
  - BLADDER SPASM [None]
  - LOCALISED INFECTION [None]
  - MALAISE [None]
  - MASS [None]
  - MICTURITION DISORDER [None]
  - OVARIAN CYST [None]
  - URINARY INCONTINENCE [None]
  - URINARY TRACT DISORDER [None]
  - WHITE BLOOD CELLS URINE POSITIVE [None]
